FAERS Safety Report 20783529 (Version 8)
Quarter: 2023Q1

REPORT INFORMATION
  Report Type: Report from Study
  Country: US (occurrence: US)
  Receive Date: 20220504
  Receipt Date: 20230310
  Transmission Date: 20230417
  Serious: Yes (Other)
  Sender: FDA-Public Use
  Company Number: US-NOVARTISTESTPH-NVSC2022US101774

PATIENT
  Sex: Female

DRUGS (2)
  1. COSENTYX [Suspect]
     Active Substance: SECUKINUMAB
     Indication: Psoriatic arthropathy
     Dosage: UNK UNK, QW
     Route: 058
  2. COSENTYX [Suspect]
     Active Substance: SECUKINUMAB
     Dosage: UNK UNK, QMO
     Route: 058

REACTIONS (9)
  - Psoriatic arthropathy [Unknown]
  - Abdominal discomfort [Unknown]
  - Pain [Unknown]
  - Cold sweat [Unknown]
  - Nausea [Unknown]
  - Joint swelling [Recovering/Resolving]
  - Diarrhoea [Unknown]
  - Stress [Unknown]
  - Therapeutic product effect incomplete [Unknown]
